FAERS Safety Report 6188638-5 (Version None)
Quarter: 2009Q2

REPORT INFORMATION
  Report Type: 
  Country: None (occurrence: None)
  Receive Date: 20090513
  Receipt Date: 20081127
  Transmission Date: 20091009
  Serious: No
  Sender: FDA-Public Use
  Company Number: US-B.I. PHARMACEUTICALS,INC./RIDGEFIELD-2008-BP-18065BP

PATIENT
  Sex: Female

DRUGS (2)
  1. MIRAPEX [Suspect]
     Indication: TREMOR
     Route: 048
     Dates: start: 20050101, end: 20060101
  2. CINNAMON [Suspect]
     Indication: TREMOR

REACTIONS (2)
  - HALLUCINATION [None]
  - NIGHTMARE [None]
